FAERS Safety Report 9506510 (Version 1)
Quarter: 2013Q3

REPORT INFORMATION
  Report Type: Spontaneous
  Country: US (occurrence: None)
  Receive Date: 20130905
  Receipt Date: 20130905
  Transmission Date: 20140515
  Serious: Yes (Hospitalization)
  Sender: FDA-Public Use
  Company Number: None

PATIENT
  Age: 87 Year
  Sex: Female
  Weight: 78 kg

DRUGS (18)
  1. WARFARIN [Suspect]
     Indication: DEEP VEIN THROMBOSIS
     Dosage: 1 MG ALTERNATE WITH 2 MG QD ORAL
  2. ACETAMINOPHEN [Concomitant]
  3. ALPRAZOLAM [Concomitant]
  4. AMLODIPINE [Concomitant]
  5. ASPIR [Concomitant]
  6. ATENOLOL [Concomitant]
  7. ATORVASTATIN [Concomitant]
  8. BISACODYL [Concomitant]
  9. CLONIDINE [Concomitant]
  10. DIVALPROEX [Concomitant]
  11. DOCUSATE/SENNA [Concomitant]
  12. FAMOTIDINE [Concomitant]
  13. FOLIC ACID [Concomitant]
  14. ISOSORBIDE MONONITRATE [Concomitant]
  15. RIVASTIGMINE [Concomitant]
  16. TIMOLOL [Concomitant]
  17. TRAVAPROST [Concomitant]
  18. TRIAMTERENE/HCTZ [Concomitant]

REACTIONS (2)
  - Haematochezia [None]
  - International normalised ratio increased [None]
